FAERS Safety Report 24547959 (Version 1)
Quarter: 2024Q4

REPORT INFORMATION
  Report Type: Spontaneous
  Country: US (occurrence: US)
  Receive Date: 20241025
  Receipt Date: 20241025
  Transmission Date: 20250115
  Serious: No
  Sender: LUPIN
  Company Number: US-LUPIN PHARMACEUTICALS INC.-2024-10415

PATIENT

DRUGS (1)
  1. CEFADROXIL [Suspect]
     Active Substance: CEFADROXIL
     Indication: Urinary tract infection
     Dosage: 1 DOSAGE FORM, QD
     Route: 065
     Dates: start: 20240801, end: 20240813

REACTIONS (8)
  - Hypersensitivity [Unknown]
  - Feeling abnormal [Unknown]
  - Illness [Unknown]
  - Pain [Unknown]
  - Discomfort [Unknown]
  - Acne [Unknown]
  - Rash erythematous [Unknown]
  - Loss of personal independence in daily activities [Unknown]
